FAERS Safety Report 7198676-1 (Version None)
Quarter: 2010Q4

REPORT INFORMATION
  Report Type: 
  Country: None (occurrence: None)
  Receive Date: 20101227
  Receipt Date: 20101216
  Transmission Date: 20110411
  Serious: Yes (Hospitalization)
  Sender: FDA-Public Use
  Company Number: FR-JNJFOC-20101206123

PATIENT
  Age: 14 Year
  Sex: Male

DRUGS (5)
  1. TAVANIC [Suspect]
     Indication: LUNG DISORDER
     Route: 065
  2. NEURONTIN [Suspect]
     Indication: ILL-DEFINED DISORDER
     Route: 048
  3. RIVOTRIL [Suspect]
     Indication: ILL-DEFINED DISORDER
     Route: 065
  4. ACETAMINOPHEN [Suspect]
     Route: 065
  5. ACETAMINOPHEN [Suspect]
     Indication: ILL-DEFINED DISORDER
     Route: 065

REACTIONS (3)
  - ILEUS [None]
  - PANCREATITIS ACUTE [None]
  - PNEUMOPERITONEUM [None]
